FAERS Safety Report 23015842 (Version 1)
Quarter: 2023Q4

REPORT INFORMATION
  Report Type: Spontaneous
  Country: US (occurrence: US)
  Receive Date: 20231002
  Receipt Date: 20231002
  Transmission Date: 20240110
  Serious: No
  Sender: FDA-Public Use
  Company Number: US-MYLANLABS-2023M1103304

PATIENT
  Sex: Female

DRUGS (2)
  1. CELEBREX [Suspect]
     Active Substance: CELECOXIB
     Indication: Pain
     Dosage: 200 MILLIGRAM, QD (200 MG CAPSULE ONCE A DAY BY MOUTH)
     Route: 048
  2. CELEBREX [Suspect]
     Active Substance: CELECOXIB
     Indication: Swelling

REACTIONS (1)
  - Off label use [Unknown]
